FAERS Safety Report 6168756-8 (Version None)
Quarter: 2009Q2

REPORT INFORMATION
  Report Type: 
  Country: None (occurrence: None)
  Receive Date: 20090427
  Receipt Date: 20090422
  Transmission Date: 20091009
  Serious: Yes (Disabling)
  Sender: FDA-Public Use
  Company Number: US-MERCK-0904USA03542

PATIENT
  Age: 42 Year
  Sex: Female

DRUGS (2)
  1. ZETIA [Suspect]
     Indication: BLOOD CHOLESTEROL INCREASED
     Route: 048
     Dates: start: 20081001, end: 20090101
  2. ZETIA [Suspect]
     Route: 048
     Dates: start: 20090101, end: 20090410

REACTIONS (10)
  - ABDOMINAL PAIN [None]
  - ARTHRALGIA [None]
  - FATIGUE [None]
  - HEPATIC ENZYME INCREASED [None]
  - INAPPROPRIATE SCHEDULE OF DRUG ADMINISTRATION [None]
  - MALABSORPTION [None]
  - MALAISE [None]
  - MUCOUS STOOLS [None]
  - OEDEMA PERIPHERAL [None]
  - SWELLING FACE [None]
